FAERS Safety Report 24561264 (Version 1)
Quarter: 2024Q4

REPORT INFORMATION
  Report Type: Spontaneous
  Country: US (occurrence: None)
  Receive Date: 20241029
  Receipt Date: 20241029
  Transmission Date: 20250115
  Serious: Yes (Life-Threatening, Hospitalization, Disabling)
  Sender: Public
  Company Number: None

PATIENT
  Age: 34 Year
  Sex: Male
  Weight: 78.3 kg

DRUGS (13)
  1. COLCHICINE [Suspect]
     Active Substance: COLCHICINE
     Indication: Gout
     Dosage: OTHER QUANTITY : 0.5 TABLET(S);?OTHER FREQUENCY : EVERY OTHER DAY;?
     Route: 048
  2. FOLIC ACID [Concomitant]
  3. HYDROXYUREA [Concomitant]
  4. OXYCODONE [Concomitant]
  5. oxycotin [Concomitant]
  6. xorelto [Concomitant]
  7. dignity [Concomitant]
  8. Power port contacts glasses [Concomitant]
  9. Senna kot [Concomitant]
  10. B12 [Concomitant]
  11. CHLOROPHYLL [Concomitant]
  12. turmeric powder [Concomitant]
  13. iron it out [Concomitant]

REACTIONS (6)
  - Sickle cell anaemia with crisis [None]
  - Pneumothorax [None]
  - Renal disorder [None]
  - Anaemia [None]
  - Acute chest syndrome [None]
  - Gout [None]

NARRATIVE: CASE EVENT DATE: 20240303
